FAERS Safety Report 25591064 (Version 4)
Quarter: 2025Q3

REPORT INFORMATION
  Report Type: Spontaneous
  Country: US (occurrence: US)
  Receive Date: 20250722
  Receipt Date: 20250819
  Transmission Date: 20251021
  Serious: No
  Sender: PFIZER
  Company Number: US-PFIZER INC-202500145928

PATIENT
  Age: 38 Year
  Sex: Female
  Weight: 94.8 kg

DRUGS (7)
  1. BICILLIN L-A [Suspect]
     Active Substance: PENICILLIN G BENZATHINE
     Indication: Syphilis
     Route: 030
     Dates: start: 20250410, end: 20250410
  2. BICILLIN L-A [Suspect]
     Active Substance: PENICILLIN G BENZATHINE
     Route: 030
     Dates: start: 20250417, end: 20250417
  3. BICILLIN L-A [Suspect]
     Active Substance: PENICILLIN G BENZATHINE
     Route: 030
     Dates: start: 20250501, end: 20250501
  4. ABILIFY [Concomitant]
     Active Substance: ARIPIPRAZOLE
     Dosage: 10 MG, DAILY
  5. LORAZEPAM [Concomitant]
     Active Substance: LORAZEPAM
     Dosage: 1 MG, 3X/DAY
  6. TRAZODONE [Concomitant]
     Active Substance: TRAZODONE HYDROCHLORIDE
     Dosage: 150 MG, DAILY
  7. NICOTINE [Concomitant]
     Active Substance: NICOTINE

REACTIONS (2)
  - Recalled product administered [Unknown]
  - Off label use [Unknown]

NARRATIVE: CASE EVENT DATE: 20250410
